FAERS Safety Report 20846141 (Version 1)
Quarter: 2022Q2

REPORT INFORMATION
  Report Type: Spontaneous
  Country: US (occurrence: US)
  Receive Date: 20220518
  Receipt Date: 20220518
  Transmission Date: 20220721
  Serious: No
  Sender: FDA-Public Use
  Company Number: US-PFIZER INC-202200144941

PATIENT
  Age: 19 Year
  Sex: Male

DRUGS (12)
  1. DEPO-MEDROL [Suspect]
     Active Substance: METHYLPREDNISOLONE ACETATE
     Indication: Product used for unknown indication
     Dosage: 40 MG/ML
  2. HETLIOZ [Suspect]
     Active Substance: TASIMELTEON
     Indication: Cytogenetic abnormality
     Dosage: 20 MG, DAILY (ONE HOUR BEFORE BEDTIME)
     Route: 048
  3. GUANFACINE HYDROCHLORIDE [Concomitant]
     Active Substance: GUANFACINE HYDROCHLORIDE
     Dosage: 2 MG
  4. DESMOPRESSIN ACETATE [Concomitant]
     Active Substance: DESMOPRESSIN ACETATE
     Dosage: 0.1 MG
  5. NAC 500 [Concomitant]
     Dosage: 500 MG
  6. INOSITOL [Concomitant]
     Active Substance: INOSITOL
     Dosage: UNK
  7. MELATONIN [Concomitant]
     Active Substance: MELATONIN
     Dosage: 100 % ( (POWDER EXCEPT DPO))
  8. CALCIUM [Concomitant]
     Active Substance: CALCIUM
     Dosage: 500
  9. TRILEPTAL [Concomitant]
     Active Substance: OXCARBAZEPINE
     Dosage: 300 MG
  10. PROZAC [Concomitant]
     Active Substance: FLUOXETINE HYDROCHLORIDE
     Dosage: 20 MG
  11. ACEBUTOLOL [Concomitant]
     Active Substance: ACEBUTOLOL
     Dosage: 400 MG
  12. LOVAZA [Concomitant]
     Active Substance: OMEGA-3-ACID ETHYL ESTERS
     Dosage: 1 G

REACTIONS (2)
  - Off label use [Unknown]
  - Weight increased [Unknown]
